FAERS Safety Report 5007996-8 (Version None)
Quarter: 2006Q2

REPORT INFORMATION
  Report Type: 
  Country: None (occurrence: None)
  Receive Date: 20060518
  Receipt Date: 20060510
  Transmission Date: 20061013
  Serious: Yes (Hospitalization, Other)
  Sender: FDA-Public Use
  Company Number: 2006063319

PATIENT
  Age: 33 Year
  Sex: Female

DRUGS (8)
  1. VIRACEPT [Suspect]
     Indication: HIV TEST POSITIVE
  2. EPIVIR [Suspect]
     Indication: HIV TEST POSITIVE
  3. VIRAMUNE [Suspect]
     Indication: HIV TEST POSITIVE
  4. VIREAD [Suspect]
     Indication: HIV TEST POSITIVE
  5. NORVIR [Suspect]
     Indication: HIV TEST POSITIVE
  6. FOSAMPRENVAIR (FOSAMPRENAVIR) [Suspect]
     Indication: HIV TEST POSITIVE
  7. FUZEON [Suspect]
     Indication: HIV TEST POSITIVE
  8. COMBIVIR [Suspect]
     Indication: HIV TEST POSITIVE

REACTIONS (7)
  - CAESAREAN SECTION [None]
  - DRUG EXPOSURE DURING PREGNANCY [None]
  - MULTIPLE-DRUG RESISTANCE [None]
  - NAUSEA [None]
  - PREGNANCY [None]
  - THERAPY NON-RESPONDER [None]
  - VOMITING [None]
